FAERS Safety Report 17516142 (Version 1)
Quarter: 2020Q1

REPORT INFORMATION
  Report Type: Report from Study
  Country: CO (occurrence: CO)
  Receive Date: 20200309
  Receipt Date: 20200309
  Transmission Date: 20200409
  Serious: Yes (Other)
  Sender: FDA-Public Use
  Company Number: PHHY2018CO153541

PATIENT
  Sex: Female

DRUGS (4)
  1. AFINITOR [Suspect]
     Active Substance: EVEROLIMUS
     Dosage: 2.5 MG, QD (ONCE DAILY)
     Route: 048
  2. AFINITOR [Suspect]
     Active Substance: EVEROLIMUS
     Indication: GASTROENTEROPANCREATIC NEUROENDOCRINE TUMOUR DISEASE
     Dosage: 5 MG, QD
     Route: 048
     Dates: start: 20181008
  3. AFINITOR [Suspect]
     Active Substance: EVEROLIMUS
     Indication: NEUROENDOCRINE TUMOUR OF THE LUNG
     Dosage: 2.5 MG, QD (5 MG TABLET SPLIT IN TO HALF)
     Route: 048
  4. SANDOSTATIN LAR DEPOT [Suspect]
     Active Substance: OCTREOTIDE ACETATE
     Indication: GASTROENTEROPANCREATIC NEUROENDOCRINE TUMOUR DISEASE
     Dosage: 30 MG, QMO
     Route: 030
     Dates: start: 20181023

REACTIONS (21)
  - Bone pain [Unknown]
  - Tooth disorder [Unknown]
  - Weight decreased [Unknown]
  - Dry mouth [Unknown]
  - Stomatitis [Unknown]
  - Oral mucosal exfoliation [Unknown]
  - Dry skin [Unknown]
  - Product prescribing error [Unknown]
  - Feeding disorder [Unknown]
  - Lip dry [Unknown]
  - Insomnia [Unknown]
  - Chills [Unknown]
  - Blood glucose increased [Unknown]
  - Malaise [Unknown]
  - Influenza [Unknown]
  - Mouth haemorrhage [Unknown]
  - Wrong technique in product usage process [Unknown]
  - Mouth injury [Unknown]
  - Diarrhoea [Unknown]
  - Vomiting [Unknown]
  - Tongue exfoliation [Unknown]
